FAERS Safety Report 11292419 (Version 2)
Quarter: 2015Q3

REPORT INFORMATION
  Report Type: Report from Study
  Country: RU (occurrence: RU)
  Receive Date: 20150722
  Receipt Date: 20150807
  Transmission Date: 20151125
  Serious: Yes (Hospitalization)
  Sender: FDA-Public Use
  Company Number: RU-PFIZER INC-2015237204

PATIENT
  Age: 72 Year
  Sex: Female
  Weight: 59 kg

DRUGS (7)
  1. VIGANTOL [Concomitant]
     Indication: OSTEOPOROSIS
     Dosage: 1500.0 IU, QD
     Dates: start: 20140925
  2. EUTHYROX [Concomitant]
     Active Substance: LEVOTHYROXINE SODIUM
     Indication: THYROID DISORDER
     Dosage: 25 MG, QD
     Dates: start: 1987
  3. TOFACITINIB CITRATE [Suspect]
     Active Substance: TOFACITINIB CITRATE
     Dosage: PLACEBO FOR ADALIMUMAB, AFTER A WEEK
     Route: 058
     Dates: start: 20150205
  4. AMLODIPINE [Concomitant]
     Active Substance: AMLODIPINE BESYLATE
     Indication: ESSENTIAL HYPERTENSION
     Dosage: 5MG, QD
     Dates: start: 2010
  5. FOROSA [Concomitant]
     Indication: OSTEOPOROSIS
     Dosage: 70 MG, WEEKLY
     Dates: start: 20140925
  6. TOFACITINIB CITRATE [Suspect]
     Active Substance: TOFACITINIB CITRATE
     Indication: RHEUMATOID ARTHRITIS
     Dosage: 5 MG, 2X/DAY
     Route: 048
     Dates: start: 20150205, end: 20150630
  7. TOFACITINIB CITRATE [Suspect]
     Active Substance: TOFACITINIB CITRATE
     Dosage: PLACEBO FOR MTX , ONCE A WEEK
     Route: 048
     Dates: start: 20150205

REACTIONS (2)
  - Diverticulum intestinal [Recovered/Resolved]
  - Condition aggravated [Recovered/Resolved]

NARRATIVE: CASE EVENT DATE: 20150630
